FAERS Safety Report 6785587-6 (Version None)
Quarter: 2010Q2

REPORT INFORMATION
  Report Type: 
  Country: None (occurrence: None)
  Receive Date: 20100623
  Receipt Date: 20100616
  Transmission Date: 20101027
  Serious: Yes (Death, Hospitalization)
  Sender: FDA-Public Use
  Company Number: JP-BAYER-201013016BYL

PATIENT
  Age: 72 Year
  Sex: Male

DRUGS (19)
  1. FLUDARA [Suspect]
     Indication: MANTLE CELL LYMPHOMA STAGE IV
     Route: 048
     Dates: start: 20080808, end: 20080810
  2. ENDOXAN [Suspect]
     Indication: MANTLE CELL LYMPHOMA STAGE IV
     Route: 042
     Dates: start: 20080808, end: 20080810
  3. RITUXAN [Concomitant]
     Indication: MANTLE CELL LYMPHOMA STAGE IV
     Route: 041
     Dates: start: 20080806, end: 20080806
  4. NOVANTRONE [Concomitant]
     Indication: MANTLE CELL LYMPHOMA STAGE IV
     Route: 042
     Dates: start: 20080808, end: 20080808
  5. DECADRON [Concomitant]
     Indication: MANTLE CELL LYMPHOMA STAGE IV
     Route: 041
     Dates: start: 20080821, end: 20080829
  6. DECADRON [Concomitant]
     Route: 041
     Dates: start: 20080805, end: 20080815
  7. DECADRON [Concomitant]
     Route: 041
     Dates: start: 20080816, end: 20080820
  8. ALBUMIN (HUMAN) [Concomitant]
     Indication: HYPOALBUMINAEMIA
     Route: 042
     Dates: start: 20080805, end: 20080807
  9. NOVOLIN R [Concomitant]
     Indication: HYPERGLYCAEMIA
     Dosage: AS USED: 10-20 IU
     Route: 042
     Dates: start: 20080826, end: 20080828
  10. ZANTAC [Concomitant]
     Indication: GASTRIC ULCER
     Route: 042
     Dates: end: 20080829
  11. OLMETEC [Concomitant]
     Indication: HYPERTENSION
     Route: 048
     Dates: end: 20080823
  12. ATELEC [Concomitant]
     Indication: HYPERTENSION
     Route: 048
     Dates: end: 20080823
  13. GASTER D [Concomitant]
     Indication: GASTRIC ULCER
     Route: 048
     Dates: end: 20080825
  14. LASIX [Concomitant]
     Indication: OEDEMA
     Route: 048
     Dates: start: 20080730, end: 20080801
  15. LASIX [Concomitant]
     Route: 048
     Dates: start: 20080821, end: 20080823
  16. ALOSITOL [Concomitant]
     Indication: HYPERURICAEMIA
     Route: 048
     Dates: start: 20080730, end: 20080820
  17. COTRIM [Concomitant]
     Indication: ANTIFUNGAL PROPHYLAXIS
     Route: 048
     Dates: start: 20080806, end: 20080823
  18. ALOSENN [Concomitant]
     Indication: CONSTIPATION
     Route: 048
     Dates: start: 20080704, end: 20080823
  19. PURSENNID [Concomitant]
     Indication: CONSTIPATION
     Route: 048
     Dates: start: 20080817, end: 20080824

REACTIONS (4)
  - BONE MARROW FAILURE [None]
  - CEREBRAL INFARCTION [None]
  - HYPERBILIRUBINAEMIA [None]
  - HYPERNATRAEMIA [None]
